FAERS Safety Report 7303903-3 (Version None)
Quarter: 2011Q1

REPORT INFORMATION
  Report Type: 
  Country: None (occurrence: None)
  Receive Date: 20110221
  Receipt Date: 20110214
  Transmission Date: 20110831
  Serious: Yes (Other)
  Sender: FDA-Public Use
  Company Number: B0701080A

PATIENT
  Age: 48 Year
  Sex: Female

DRUGS (5)
  1. WARFARIN SODIUM [Concomitant]
  2. LAMICTAL [Suspect]
     Indication: BIPOLAR DISORDER
     Route: 065
  3. FLUOXETINE [Concomitant]
  4. DISPRIN [Concomitant]
  5. SEROQUEL [Concomitant]

REACTIONS (1)
  - DYSPNOEA [None]
